FAERS Safety Report 6445850-5 (Version None)
Quarter: 2009Q4

REPORT INFORMATION
  Report Type: 
  Country: None (occurrence: None)
  Receive Date: 20091119
  Receipt Date: 20091112
  Transmission Date: 20100525
  Serious: Yes (Other)
  Sender: FDA-Public Use
  Company Number: FR-BIOGENIDEC-2009BI037016

PATIENT
  Age: 40 Year
  Sex: Female

DRUGS (2)
  1. AVONEX [Suspect]
     Indication: MULTIPLE SCLEROSIS
     Route: 030
     Dates: start: 20050330, end: 20071010
  2. DAFALGAN [Concomitant]
     Dates: start: 20050330, end: 20071010

REACTIONS (3)
  - ASTHENIA [None]
  - DEPRESSION [None]
  - LIBIDO DISORDER [None]
